FAERS Safety Report 10044454 (Version 8)
Quarter: 2017Q3

REPORT INFORMATION
  Report Type: Report from Study
  Country: JP (occurrence: JP)
  Receive Date: 20140328
  Receipt Date: 20170710
  Transmission Date: 20171127
  Serious: Yes (Hospitalization)
  Sender: FDA-Public Use
  Company Number: JP-ROCHE-1367087

PATIENT
  Age: 72 Year
  Sex: Female
  Weight: 60.4 kg

DRUGS (37)
  1. TRASTUZUMAB. [Suspect]
     Active Substance: TRASTUZUMAB
     Dosage: MAINTENANCE DOSE. LAST DOSE PRIOR TO SAE: 01/APR/2014
     Route: 042
  2. EMEND [Concomitant]
     Active Substance: APREPITANT
     Indication: NAUSEA
     Dosage: SELECT IF ONGOING=YES
     Route: 048
     Dates: start: 20140301
  3. OXYCONTIN [Concomitant]
     Active Substance: OXYCODONE HYDROCHLORIDE
     Indication: ABDOMINAL PAIN
     Dosage: SELECT IF ONGOING=YES
     Route: 048
     Dates: start: 20140422
  4. AMITIZA [Concomitant]
     Active Substance: LUBIPROSTONE
     Indication: CONSTIPATION
     Route: 048
     Dates: start: 20140407
  5. CISPLATIN. [Suspect]
     Active Substance: CISPLATIN
     Dosage: MOST RECENT DOSE ON 01/APR/2014.
     Route: 042
  6. MAGNESIUM SULFATE. [Concomitant]
     Active Substance: MAGNESIUM SULFATE
     Route: 042
     Dates: start: 20140228
  7. TRASTUZUMAB. [Suspect]
     Active Substance: TRASTUZUMAB
     Indication: HER-2 POSITIVE GASTRIC CANCER
     Dosage: LOADING DOSE ON DAY 1
     Route: 042
     Dates: start: 20140228, end: 20140228
  8. ADALAT [Concomitant]
     Active Substance: NIFEDIPINE
     Indication: HYPERTENSION
     Dosage: SELECT IF ONGOING=NO
     Route: 048
     Dates: start: 20140303, end: 20140303
  9. CAPECITABINE. [Suspect]
     Active Substance: CAPECITABINE
     Indication: HER-2 POSITIVE GASTRIC CANCER
     Dosage: LAST DOSE PRIOR TO SAE ON 01/MAR/2014
     Route: 048
     Dates: start: 20140228, end: 20140301
  10. KENALOG IN ORABASE [Concomitant]
     Active Substance: TRIAMCINOLONE ACETONIDE
     Indication: STOMATITIS
     Route: 062
     Dates: start: 20140311
  11. CHLOR-TRIMETON [Concomitant]
     Active Substance: CHLORPHENIRAMINE MALEATE
     Indication: INFUSION RELATED REACTION
     Dosage: SELECT IF ONGOING=YES
     Route: 042
     Dates: start: 20140401
  12. ZYPREXA [Concomitant]
     Active Substance: OLANZAPINE
     Indication: NAUSEA
     Route: 048
     Dates: start: 20140304, end: 20140304
  13. CALONAL [Concomitant]
     Active Substance: ACETAMINOPHEN
     Indication: INFUSION RELATED REACTION
     Dosage: SELECT IF ONGOING=YES
     Route: 048
     Dates: start: 20140401
  14. LENDORMIN D [Concomitant]
     Active Substance: BROTIZOLAM
     Indication: INSOMNIA
     Route: 048
     Dates: start: 20140309, end: 20140309
  15. BLINDED PERTUZUMAB [Suspect]
     Active Substance: PERTUZUMAB
     Indication: HER-2 POSITIVE GASTRIC CANCER
     Dosage: LOADING DOSE
     Route: 042
     Dates: start: 20140228, end: 20140228
  16. CISPLATIN. [Suspect]
     Active Substance: CISPLATIN
     Indication: HER-2 POSITIVE GASTRIC CANCER
     Dosage: Q3S
     Route: 042
     Dates: start: 20140228, end: 20140228
  17. ALOXI [Concomitant]
     Active Substance: PALONOSETRON HYDROCHLORIDE
     Indication: NAUSEA
     Dosage: SELECT IF ONGOING=YES
     Route: 042
     Dates: start: 20140228
  18. VEEN-D [Concomitant]
     Active Substance: DEXTROSE
     Indication: DEHYDRATION
     Dosage: SELECT IF ONGOING=NO
     Route: 042
     Dates: start: 20140304, end: 20140304
  19. MAGMITT [Concomitant]
     Active Substance: MAGNESIUM OXIDE
     Indication: CONSTIPATION
     Route: 048
     Dates: start: 20140324
  20. DENOSALIN [Concomitant]
     Dosage: SELECT IF ONGOING=YES
     Route: 042
     Dates: start: 20140228
  21. MANNITOL. [Concomitant]
     Active Substance: MANNITOL
     Route: 042
     Dates: start: 20140228
  22. OXYCONTIN [Concomitant]
     Active Substance: OXYCODONE HYDROCHLORIDE
     Indication: GASTROINTESTINAL INFLAMMATION
     Dosage: SELECT IF ONGOING=NO
     Route: 048
     Dates: start: 20140326, end: 20140421
  23. CAPECITABINE. [Suspect]
     Active Substance: CAPECITABINE
     Dosage: ON 14/MAR/2014 DOSE WAS REDUCED   LAST DOSE PRIOR TO SAE: 01/APR/2014
     Route: 048
  24. AZUNOL [Concomitant]
     Active Substance: SODIUM GUALENATE
     Indication: STOMATITIS
     Route: 062
     Dates: start: 20140311
  25. DECADRON [Concomitant]
     Active Substance: DEXAMETHASONE
     Indication: NAUSEA
     Dosage: SELECT IF ONGOING=YES
     Route: 042
     Dates: start: 20140301
  26. EMEND [Concomitant]
     Active Substance: APREPITANT
     Indication: NAUSEA
     Dosage: SELECT IF ONGOING=YES
     Route: 048
     Dates: start: 20140228
  27. GASTER [Concomitant]
     Active Substance: FAMOTIDINE
     Indication: INFUSION RELATED REACTION
     Route: 042
     Dates: start: 20140228, end: 20140228
  28. LECICARBON (JAPAN) [Concomitant]
     Indication: CONSTIPATION
     Dosage: SELECT IF ONGOING=YES DOSE UNIT=OTHER
     Route: 054
     Dates: start: 20140405
  29. PARIET [Concomitant]
     Active Substance: RABEPRAZOLE SODIUM
     Indication: PROPHYLAXIS
     Route: 048
     Dates: start: 20140207
  30. DECADRON [Concomitant]
     Active Substance: DEXAMETHASONE
     Indication: NAUSEA
     Dosage: SELECT IF ONGOING=YES
     Route: 042
     Dates: start: 20140228
  31. CHLOR-TRIMETON [Concomitant]
     Active Substance: CHLORPHENIRAMINE MALEATE
     Indication: INFUSION RELATED REACTION
     Route: 042
     Dates: start: 20140228, end: 20140228
  32. PANSPORIN [Concomitant]
     Active Substance: CEFOTIAM HYDROCHLORIDE
     Indication: INFECTION
     Route: 048
     Dates: start: 20140311, end: 20140315
  33. SOSEGON [Concomitant]
     Active Substance: PENTAZOCINE
     Indication: GASTROINTESTINAL INFLAMMATION
     Route: 042
     Dates: start: 20140318, end: 20140318
  34. INTRALIPOS [Concomitant]
     Active Substance: SOYBEAN OIL
     Indication: GASTROINTESTINAL INFLAMMATION
     Dosage: SELECT IF ONGOING=NO
     Route: 042
     Dates: start: 20140317, end: 20140324
  35. CALONAL [Concomitant]
     Active Substance: ACETAMINOPHEN
     Indication: GASTROINTESTINAL INFLAMMATION
     Route: 048
     Dates: start: 20140317, end: 20140318
  36. OXYCONTIN [Concomitant]
     Active Substance: OXYCODONE HYDROCHLORIDE
     Indication: GASTROINTESTINAL INFLAMMATION
     Route: 048
     Dates: start: 20140318, end: 20140326
  37. LOPEMIN (JAPAN) [Concomitant]
     Indication: DIARRHOEA
     Route: 048
     Dates: start: 20140416, end: 20140416

REACTIONS (2)
  - Decreased appetite [Recovered/Resolved]
  - Gastrointestinal inflammation [Recovered/Resolved]

NARRATIVE: CASE EVENT DATE: 20140301
